FAERS Safety Report 18744720 (Version 13)
Quarter: 2021Q4

REPORT INFORMATION
  Report Type: Report from Study
  Country: US (occurrence: US)
  Receive Date: 20210115
  Receipt Date: 20211014
  Transmission Date: 20220303
  Serious: Yes (Hospitalization, Disabling, Other)
  Sender: FDA-Public Use
  Company Number: US-BOEHRINGERINGELHEIM-2020-BI-045097

PATIENT
  Age: 54 Year
  Sex: Male

DRUGS (2)
  1. OFEV [Suspect]
     Active Substance: NINTEDANIB
     Indication: Idiopathic pulmonary fibrosis
     Dosage: OFEV DOSE 300MG DAILY
     Route: 048
     Dates: start: 20200818, end: 20210420
  2. OFEV [Suspect]
     Active Substance: NINTEDANIB
     Route: 048

REACTIONS (30)
  - Bone graft [Unknown]
  - Prostatitis [Unknown]
  - Pain [Unknown]
  - Colitis [Unknown]
  - Dehydration [Unknown]
  - Terminal state [Unknown]
  - Diarrhoea haemorrhagic [Not Recovered/Not Resolved]
  - Diarrhoea [Not Recovered/Not Resolved]
  - Necrosis [Unknown]
  - Abdominal distension [Not Recovered/Not Resolved]
  - Vomiting [Not Recovered/Not Resolved]
  - Feeling abnormal [Unknown]
  - Weight decreased [Not Recovered/Not Resolved]
  - Amnesia [Not Recovered/Not Resolved]
  - Depression [Not Recovered/Not Resolved]
  - Blood potassium decreased [Unknown]
  - Back disorder [Not Recovered/Not Resolved]
  - Arthralgia [Unknown]
  - Urinary retention [Unknown]
  - Faeces discoloured [Unknown]
  - Faeces discoloured [Unknown]
  - Haematochezia [Unknown]
  - Proctalgia [Not Recovered/Not Resolved]
  - Nausea [Not Recovered/Not Resolved]
  - Decreased appetite [Unknown]
  - Faeces discoloured [Unknown]
  - Procedural pain [Unknown]
  - Cough [Unknown]
  - Dyspnoea [Unknown]
  - Headache [Not Recovered/Not Resolved]

NARRATIVE: CASE EVENT DATE: 20201001
